FAERS Safety Report 6324230-7 (Version None)
Quarter: 2009Q3

REPORT INFORMATION
  Report Type: 
  Country: None (occurrence: None)
  Receive Date: 20090824
  Receipt Date: 20090422
  Transmission Date: 20100115
  Serious: No
  Sender: FDA-Public Use
  Company Number: US-ABBOTT-09P-163-0569437-00

PATIENT
  Sex: Male
  Weight: 105.33 kg

DRUGS (14)
  1. NIASPAN [Suspect]
     Indication: BLOOD CHOLESTEROL INCREASED
     Route: 048
     Dates: start: 20090418
  2. DARVOCET-N 100 [Concomitant]
     Indication: DRUG USE FOR UNKNOWN INDICATION
  3. ATENOLOL [Concomitant]
     Indication: DRUG USE FOR UNKNOWN INDICATION
  4. PLAVIX [Concomitant]
     Indication: DRUG USE FOR UNKNOWN INDICATION
  5. ALBUTEROL [Concomitant]
     Indication: DRUG USE FOR UNKNOWN INDICATION
  6. SIMVASTATIN [Concomitant]
     Indication: DRUG USE FOR UNKNOWN INDICATION
  7. ASPIRIN [Concomitant]
     Indication: DRUG USE FOR UNKNOWN INDICATION
  8. SIMVASTATIN [Concomitant]
  9. NOVOLOG [Concomitant]
     Indication: DRUG USE FOR UNKNOWN INDICATION
  10. NPH [Concomitant]
     Indication: DRUG USE FOR UNKNOWN INDICATION
  11. TIRAELTAM [Concomitant]
     Indication: DRUG USE FOR UNKNOWN INDICATION
  12. METFORMIN HCL [Concomitant]
     Indication: DRUG USE FOR UNKNOWN INDICATION
  13. ZANTAC [Concomitant]
     Indication: DRUG USE FOR UNKNOWN INDICATION
  14. NITROGLYCERIN [Concomitant]
     Indication: DRUG USE FOR UNKNOWN INDICATION

REACTIONS (1)
  - BLOOD GLUCOSE INCREASED [None]
